FAERS Safety Report 8455731-3 (Version None)
Quarter: 2012Q2

REPORT INFORMATION
  Report Type: 
  Country: None (occurrence: None)
  Receive Date: 20120621
  Receipt Date: 20120611
  Transmission Date: 20120825
  Serious: Yes (Death, Other)
  Sender: FDA-Public Use
  Company Number: IE-TEVA-337701ISR

PATIENT
  Sex: Female

DRUGS (11)
  1. PARALIEF [Concomitant]
     Indication: ANALGESIC THERAPY
     Dosage: UNIT DOSE: 0.5-1G, DOSAGE FREQUENCY: 4G MAX (PRN).
     Route: 048
     Dates: start: 20111202
  2. TEVA WARFARIN [Concomitant]
     Indication: THROMBOSIS PROPHYLAXIS
     Dosage: FREQUENCE: AS PER INR
     Route: 048
     Dates: start: 20111202
  3. TARGIN (OXYCODONE HYDROCHLORIDE, NALOXONE HYDROCHLORIDE DIHYDRATE) [Concomitant]
     Indication: ANALGESIC INTERVENTION SUPPORTIVE THERAPY
     Dosage: UNIT DOSE: 5 MG/2.5 MG; DAILY DOSE: 5 MG/2.5 MG
     Route: 048
     Dates: start: 20120421
  4. LYRICA [Concomitant]
     Indication: NEURALGIA
     Dosage: 100 MILLIGRAM;
     Route: 048
     Dates: start: 20111202
  5. AMITRIPTYLINE (BRAND NAME NOT SPECIFIED) [Concomitant]
     Indication: NEURALGIA
     Dosage: 25 MILLIGRAM; FREQUENCY: NOCTE
     Route: 048
     Dates: start: 20111202
  6. HALICON [Concomitant]
     Indication: INSOMNIA
     Dosage: .125 MILLIGRAM; FREQUENCY: NOCTE
     Route: 048
     Dates: start: 20111202
  7. ACTIQ [Suspect]
     Indication: BREAKTHROUGH PAIN
     Route: 048
     Dates: start: 20120421
  8. TEVA DIAGLYC [Concomitant]
     Indication: DIABETES MELLITUS
     Dosage: 90 MILLIGRAM;
     Route: 048
     Dates: start: 20111202
  9. LANOXIN [Concomitant]
     Indication: ATRIAL FIBRILLATION
     Dosage: 62.5 MILLIGRAM;
     Route: 048
     Dates: start: 20111202
  10. LIPITOR [Concomitant]
     Indication: HYPERCHOLESTEROLAEMIA
     Dosage: 20 MILLIGRAM;
     Route: 048
     Dates: start: 20111202
  11. TARGIN (OXYCODONE HYDROCHLORIDE, NALOXONE HYDROCHLORIDE DIHYDRATE) [Concomitant]
     Indication: ANALGESIC THERAPY

REACTIONS (2)
  - DRUG PRESCRIBING ERROR [None]
  - DEATH [None]
